FAERS Safety Report 8011076-7 (Version None)
Quarter: 2011Q4

REPORT INFORMATION
  Report Type: 
  Country: None (occurrence: None)
  Receive Date: 20111228
  Receipt Date: 20111205
  Transmission Date: 20120403
  Serious: Yes (Hospitalization)
  Sender: FDA-Public Use
  Company Number: JP-ROCHE-1007372

PATIENT
  Age: 6 Year
  Sex: Female

DRUGS (5)
  1. CHLORPHENIRAMINE MALEATE [Concomitant]
     Indication: PREMEDICATION
     Route: 048
  2. RITUXIMAB [Suspect]
     Indication: NON-HODGKIN'S LYMPHOMA
     Route: 042
     Dates: start: 20090318
  3. LOXOPROFEN [Concomitant]
     Indication: PREMEDICATION
     Route: 048
     Dates: start: 20090318, end: 20090325
  4. FLUDARABINE PHOSPHATE [Suspect]
     Indication: NON-HODGKIN'S LYMPHOMA
     Dosage: DAYS 4-8
     Route: 048
  5. SULFAMETHOXAZOLE [Concomitant]
     Dates: start: 20090101, end: 20110327

REACTIONS (1)
  - PNEUMOCYSTIS JIROVECI PNEUMONIA [None]
